FAERS Safety Report 5050712-4 (Version None)
Quarter: 2006Q3

REPORT INFORMATION
  Report Type: 
  Country: None (occurrence: None)
  Receive Date: 20060713
  Receipt Date: 20060703
  Transmission Date: 20061208
  Serious: Yes (Life-Threatening)
  Sender: FDA-Public Use
  Company Number: DE-BRISTOL-MYERS SQUIBB COMPANY-13432539

PATIENT
  Age: 45 Year
  Sex: Male
  Weight: 72 kg

DRUGS (4)
  1. REYATAZ [Suspect]
  2. ZERIT [Suspect]
  3. VIDEX [Suspect]
  4. NORVIR [Concomitant]

REACTIONS (4)
  - BLOOD LACTATE DEHYDROGENASE INCREASED [None]
  - BLOOD LACTIC ACID INCREASED [None]
  - LACTIC ACIDOSIS [None]
  - TRANSAMINASES INCREASED [None]
